FAERS Safety Report 5154763-0 (Version None)
Quarter: 2006Q4

REPORT INFORMATION
  Report Type: 
  Country: None (occurrence: None)
  Receive Date: 20061115
  Receipt Date: 20061115
  Transmission Date: 20070319
  Serious: Yes (Other)
  Sender: FDA-Public Use
  Company Number: None

PATIENT
  Age: 48 Year
  Sex: Female
  Weight: 90.7194 kg

DRUGS (2)
  1. PAXIL CR [Suspect]
     Indication: PANIC ATTACK
     Dosage: 1     DAY   PO
     Route: 048
     Dates: start: 20040901, end: 20061101
  2. PAXIL [Suspect]
     Indication: PANIC ATTACK
     Dosage: 1      DAY   PO
     Route: 048
     Dates: start: 20030301, end: 20040901

REACTIONS (5)
  - AVERSION [None]
  - BLOOD PRESSURE INCREASED [None]
  - DRUG DOSE OMISSION [None]
  - MIGRAINE [None]
  - PARAESTHESIA [None]
